FAERS Safety Report 17576574 (Version 1)
Quarter: 2020Q1

REPORT INFORMATION
  Report Type: Other
  Country: US (occurrence: US)
  Receive Date: 20200324
  Receipt Date: 20200324
  Transmission Date: 20200409
  Serious: No
  Sender: FDA-Public Use
  Company Number: US-ACORDA-ACO_163551_2020

PATIENT
  Sex: Male

DRUGS (4)
  1. ENTACAPONE. [Concomitant]
     Active Substance: ENTACAPONE
     Indication: PRODUCT USED FOR UNKNOWN INDICATION
     Dosage: UNK
     Route: 065
  2. INBRIJA [Suspect]
     Active Substance: LEVODOPA
     Indication: PARKINSON^S DISEASE
     Dosage: 42 MILLIGRAM, 2 CAPSULES (84 MG), PRN. NOT TO EXCEED 5 DOSES A DAY
     Dates: start: 20191206
  3. INBRIJA [Suspect]
     Active Substance: LEVODOPA
     Indication: ON AND OFF PHENOMENON
  4. CARBIDOPA/LEVODOPA [Concomitant]
     Active Substance: CARBIDOPA\LEVODOPA
     Indication: PRODUCT USED FOR UNKNOWN INDICATION
     Dosage: 25 MG 100 MG SIX TIMES A DAY
     Route: 065

REACTIONS (7)
  - Chromaturia [Unknown]
  - Anxiety [Unknown]
  - Tremor [Unknown]
  - Panic attack [Unknown]
  - Confusional state [Unknown]
  - Memory impairment [Unknown]
  - Balance disorder [Unknown]
